FAERS Safety Report 13319600 (Version 1)
Quarter: 2017Q1

REPORT INFORMATION
  Report Type: Spontaneous
  Country: US (occurrence: US)
  Receive Date: 20170309
  Receipt Date: 20170309
  Transmission Date: 20170428
  Serious: Yes (Hospitalization, Other)
  Sender: FDA-Public Use
  Company Number: US-CIPLA LTD.-2017US02710

PATIENT

DRUGS (20)
  1. ATOMOXETINE [Suspect]
     Active Substance: ATOMOXETINE
     Indication: MANIA
     Dosage: UNK
     Route: 065
  2. LITHIUM. [Suspect]
     Active Substance: LITHIUM
     Dosage: 750 MG/DAY
     Route: 065
  3. DEXTROAMPHETAMINE. [Suspect]
     Active Substance: DEXTROAMPHETAMINE
     Indication: MANIA
     Dosage: 10 MG, IN THE MORNING
     Route: 065
  4. RISPERIDONE. [Suspect]
     Active Substance: RISPERIDONE
     Indication: MANIA
     Dosage: UNK, USED FROM AGE OF 3 UNTIL AGE 10 YEARS
     Route: 065
  5. RISPERIDONE. [Suspect]
     Active Substance: RISPERIDONE
     Dosage: 2 MG/DAY
     Route: 065
  6. RISPERIDONE. [Suspect]
     Active Substance: RISPERIDONE
     Dosage: 2 MG/DAY
     Route: 065
  7. VALPROIC ACID. [Interacting]
     Active Substance: VALPROIC ACID
     Dosage: 625 MG/DAY
     Route: 065
  8. HALOPERIDOL. [Suspect]
     Active Substance: HALOPERIDOL
     Indication: MANIA
     Dosage: UNK
     Route: 065
  9. DIPHENHYDRAMINE. [Suspect]
     Active Substance: DIPHENHYDRAMINE
     Dosage: UNK, SINGLE, P.R.N
     Route: 065
  10. VALPROIC ACID. [Interacting]
     Active Substance: VALPROIC ACID
     Dosage: 750 MG/DAY
     Route: 065
  11. RISPERIDONE. [Suspect]
     Active Substance: RISPERIDONE
     Dosage: UNK, GRADUALLY INCREASING TO 1 MG
     Route: 065
  12. RISPERIDONE. [Suspect]
     Active Substance: RISPERIDONE
     Dosage: 1 MG, BID
     Route: 065
  13. RISPERIDONE. [Suspect]
     Active Substance: RISPERIDONE
     Dosage: 3 MG/DAY
     Route: 065
  14. ARIPIPRAZOLE. [Suspect]
     Active Substance: ARIPIPRAZOLE
     Indication: MANIA
     Dosage: 5 MG, BID
     Route: 065
  15. VALPROIC ACID. [Interacting]
     Active Substance: VALPROIC ACID
     Indication: MANIA
     Dosage: 250 MG, BID
     Route: 065
  16. LITHIUM. [Suspect]
     Active Substance: LITHIUM
     Indication: MANIA
     Dosage: 450 MG, BID
     Route: 065
  17. ARIPIPRAZOLE. [Suspect]
     Active Substance: ARIPIPRAZOLE
     Dosage: UNK, SLOWLY TAPERED
     Route: 065
  18. CHLORPROMAZINE. [Interacting]
     Active Substance: CHLORPROMAZINE
     Dosage: UNK, TWO ADDITIONAL P.R.N. DOSES
     Route: 065
  19. METHYLPHENIDATE. [Suspect]
     Active Substance: METHYLPHENIDATE
     Indication: MANIA
     Dosage: UNK
     Route: 065
  20. CHLORPROMAZINE. [Interacting]
     Active Substance: CHLORPROMAZINE
     Indication: MANIA
     Dosage: UNK, P.R.N, FIRST 4 DAYS OF HOSPITAL ADMISSION
     Route: 065

REACTIONS (3)
  - Mania [Recovered/Resolved]
  - Drug ineffective [Unknown]
  - Hyperammonaemia [Recovered/Resolved]
